FAERS Safety Report 8362828-5 (Version None)
Quarter: 2012Q2

REPORT INFORMATION
  Report Type: 
  Country: None (occurrence: None)
  Receive Date: 20120516
  Receipt Date: 20120511
  Transmission Date: 20120825
  Serious: Yes (Other)
  Sender: FDA-Public Use
  Company Number: PHHY2012DE023250

PATIENT
  Age: 77 Year
  Sex: Female
  Weight: 68 kg

DRUGS (11)
  1. AROMASIN [Concomitant]
  2. ACE INHIBITORS [Concomitant]
  3. DIPYRIDAMOLE [Concomitant]
     Dosage: UNK UKN, UNK
  4. LEVOTHYROXINE SODIUM [Concomitant]
  5. ZOMETA [Suspect]
     Dosage: 4 MG/ 5ML EVERY 4 WEEKS
     Route: 042
     Dates: start: 20111213
  6. ZOMETA [Suspect]
     Dosage: 4 MG/ 5ML EVERY 4 WEEKS
     Route: 042
     Dates: start: 20120110
  7. ZOMETA [Suspect]
     Dosage: 4 MG/ 5ML EVERY 4 WEEKS
     Route: 042
     Dates: start: 20120207
  8. DIURETICS [Concomitant]
  9. METOCLOPRAMIDE [Concomitant]
     Dosage: 3X20
  10. ZOMETA [Suspect]
     Indication: METASTASES TO BONE
     Dosage: 4 MG/ 5ML EVERY 4 WEEKS
     Route: 042
     Dates: start: 20111114
  11. PANTOPRAZOLE [Concomitant]
     Dosage: 20 MG, (1X1)

REACTIONS (3)
  - SYNCOPE [None]
  - INJURY [None]
  - ATRIOVENTRICULAR BLOCK SECOND DEGREE [None]
